FAERS Safety Report 18262739 (Version 1)
Quarter: 2020Q3

REPORT INFORMATION
  Report Type: Spontaneous
  Country: US (occurrence: US)
  Receive Date: 20200914
  Receipt Date: 20200914
  Transmission Date: 20201103
  Serious: No
  Sender: FDA-Public Use
  Company Number: None

PATIENT
  Age: 23 Year
  Sex: Female

DRUGS (2)
  1. AIMOVIG [Suspect]
     Active Substance: ERENUMAB-AOOE
     Indication: MIGRAINE PROPHYLAXIS
     Route: 058
     Dates: start: 20200611, end: 20200911
  2. AIMOVIG [Concomitant]
     Active Substance: ERENUMAB-AOOE
     Dates: start: 20200611, end: 20200911

REACTIONS (1)
  - Lymphadenopathy [None]
